FAERS Safety Report 12524515 (Version 1)
Quarter: 2016Q3

REPORT INFORMATION
  Report Type: Report from Study
  Country: US (occurrence: US)
  Receive Date: 20160704
  Receipt Date: 20160704
  Transmission Date: 20161109
  Serious: Yes (Hospitalization, Other)
  Sender: FDA-Public Use
  Company Number: US-JNJFOC-20160329183

PATIENT
  Sex: Male

DRUGS (7)
  1. BACTRIM [Concomitant]
     Active Substance: SULFAMETHOXAZOLE\TRIMETHOPRIM
  2. IMBRUVICA [Suspect]
     Active Substance: IBRUTINIB
     Indication: CHRONIC LYMPHOCYTIC LEUKAEMIA
     Route: 048
     Dates: start: 20160316
  3. LORAZEPAM. [Concomitant]
     Active Substance: LORAZEPAM
  4. GABAPENTIN. [Concomitant]
     Active Substance: GABAPENTIN
  5. VICODIN [Concomitant]
     Active Substance: ACETAMINOPHEN\HYDROCODONE BITARTRATE
  6. ACYCLOVIR. [Concomitant]
     Active Substance: ACYCLOVIR
  7. NIFEDICAL XL [Concomitant]
     Active Substance: NIFEDIPINE

REACTIONS (9)
  - Sinusitis [Unknown]
  - Pleural effusion [Unknown]
  - Pneumonia [Recovered/Resolved]
  - Blood sodium decreased [Recovered/Resolved]
  - Leukocytosis [Unknown]
  - Acute respiratory failure [Unknown]
  - Decreased appetite [Unknown]
  - Myalgia [Not Recovered/Not Resolved]
  - Asthenia [Not Recovered/Not Resolved]

NARRATIVE: CASE EVENT DATE: 2016
